FAERS Safety Report 16358243 (Version 1)
Quarter: 2019Q2

REPORT INFORMATION
  Report Type: Spontaneous
  Country: CA (occurrence: US)
  Receive Date: 20190527
  Receipt Date: 20190527
  Transmission Date: 20190711
  Serious: Yes (Other)
  Sender: FDA-Public Use
  Company Number: CA-009507513-1905USA009001

PATIENT
  Age: 17 Year
  Sex: Female
  Weight: 59.86 kg

DRUGS (1)
  1. NEXPLANON [Suspect]
     Active Substance: ETONOGESTREL
     Dosage: UNK
     Route: 059
     Dates: start: 20190403

REACTIONS (4)
  - Device dislocation [Not Recovered/Not Resolved]
  - Complication of device removal [Not Recovered/Not Resolved]
  - Device deployment issue [Not Recovered/Not Resolved]
  - Complication associated with device [Recovered/Resolved]

NARRATIVE: CASE EVENT DATE: 2019
